FAERS Safety Report 5828233-8 (Version None)
Quarter: 2008Q3

REPORT INFORMATION
  Report Type: 
  Country: None (occurrence: None)
  Receive Date: 20080729
  Receipt Date: 20080717
  Transmission Date: 20090109
  Serious: Yes (Other)
  Sender: FDA-Public Use
  Company Number: 2008JP003221

PATIENT
  Age: 57 Year
  Sex: Male

DRUGS (5)
  1. PROGRAF [Suspect]
     Indication: BONE MARROW TRANSPLANT
     Dosage: 0.34 MG, CONTINUOUS, IV DRIP
     Route: 041
     Dates: start: 20080222
  2. METHYLPREDNISOLONE [Concomitant]
  3. ACETAMINOPHEN [Concomitant]
  4. PENTAZOCIN        (PENTAZOCINE LACTATE) [Concomitant]
  5. CLONAZEPAM [Concomitant]

REACTIONS (2)
  - ENCEPHALITIS VIRAL [None]
  - POST TRANSPLANT DISTAL LIMB SYNDROME [None]
